FAERS Safety Report 20321748 (Version 1)
Quarter: 2022Q1

REPORT INFORMATION
  Report Type: Spontaneous
  Country: US (occurrence: None)
  Receive Date: 20220111
  Receipt Date: 20220111
  Transmission Date: 20220423
  Serious: Yes (Hospitalization)
  Sender: FDA-Public Use
  Company Number: None

PATIENT
  Age: 48 Year
  Sex: Female
  Weight: 101.2 kg

DRUGS (7)
  1. CYCLOPHOSPHAMIDE [Suspect]
     Active Substance: CYCLOPHOSPHAMIDE
     Dates: end: 20220101
  2. CYTARABINE [Suspect]
     Active Substance: CYTARABINE
     Dates: end: 20211229
  3. DOXORUBICIN HYDROCHLORIDE [Suspect]
     Active Substance: DOXORUBICIN HYDROCHLORIDE
     Dates: end: 20220101
  4. VINCRISTINE SULFATE [Suspect]
     Active Substance: VINCRISTINE SULFATE
     Dates: end: 20220101
  5. SPRYCEL [Suspect]
     Active Substance: DASATINIB
     Dates: end: 20220105
  6. DEXAMETHASONE [Suspect]
     Active Substance: DEXAMETHASONE
     Dates: end: 20220101
  7. MESNA [Suspect]
     Active Substance: MESNA
     Dates: end: 20211231

REACTIONS (4)
  - Febrile neutropenia [None]
  - Pancytopenia [None]
  - Clostridium test positive [None]
  - Toothache [None]

NARRATIVE: CASE EVENT DATE: 20220105
